FAERS Safety Report 13047982 (Version 1)
Quarter: 2016Q4

REPORT INFORMATION
  Report Type: Spontaneous
  Country: US (occurrence: US)
  Receive Date: 20161220
  Receipt Date: 20161220
  Transmission Date: 20170207
  Serious: Yes (Death, Hospitalization)
  Sender: FDA-Public Use
  Company Number: US-ACTELION-A-NJ2016-147124

PATIENT
  Age: 58 Year
  Sex: Male

DRUGS (12)
  1. ADVAIR HFA [Concomitant]
     Active Substance: FLUTICASONE PROPIONATE\SALMETEROL XINAFOATE
  2. METFORMIN [Concomitant]
     Active Substance: METFORMIN HYDROCHLORIDE
     Indication: ESSENTIAL HYPERTENSION
  3. VICTOZA [Concomitant]
     Active Substance: LIRAGLUTIDE
  4. FENOFIBRATE. [Concomitant]
     Active Substance: FENOFIBRATE
  5. JANUVIA [Concomitant]
     Active Substance: SITAGLIPTIN PHOSPHATE
  6. SILDENAFIL. [Concomitant]
     Active Substance: SILDENAFIL
     Indication: PULMONARY ARTERIAL HYPERTENSION
  7. CRESTOR [Concomitant]
     Active Substance: ROSUVASTATIN CALCIUM
  8. ATENOLOL. [Concomitant]
     Active Substance: ATENOLOL
  9. OPSUMIT [Suspect]
     Active Substance: MACITENTAN
     Indication: PULMONARY ARTERIAL HYPERTENSION
     Dosage: 10 MG, QD
     Route: 048
     Dates: start: 20141001, end: 20161211
  10. GLIPIZIDE. [Concomitant]
     Active Substance: GLIPIZIDE
  11. LISINOPRIL. [Concomitant]
     Active Substance: LISINOPRIL
  12. FUROSEMIDE. [Concomitant]
     Active Substance: FUROSEMIDE

REACTIONS (9)
  - Concomitant disease progression [Not Recovered/Not Resolved]
  - Oliguria [Fatal]
  - Dyspnoea [Unknown]
  - Pulmonary arterial hypertension [Fatal]
  - Pulmonary congestion [Unknown]
  - Disease progression [Fatal]
  - Renal failure [Fatal]
  - Oxygen saturation decreased [Unknown]
  - Respiratory failure [Not Recovered/Not Resolved]
